FAERS Safety Report 6676312-8 (Version None)
Quarter: 2010Q2

REPORT INFORMATION
  Report Type: 
  Country: None (occurrence: None)
  Receive Date: 20100412
  Receipt Date: 20100330
  Transmission Date: 20101027
  Serious: No
  Sender: FDA-Public Use
  Company Number: US-B.I. PHARMACEUTICALS,INC./RIDGEFIELD-2010-BP-03690BP

PATIENT
  Sex: Male

DRUGS (2)
  1. FLOMAX [Suspect]
     Indication: URINARY TRACT DISORDER
     Dosage: 0.4 MG
     Route: 048
  2. FLOMAX [Suspect]
     Dosage: 0.8 MG
     Route: 048

REACTIONS (5)
  - DRUG INEFFECTIVE [None]
  - NOCTURIA [None]
  - RESIDUAL URINE [None]
  - URINARY HESITATION [None]
  - URINE FLOW DECREASED [None]
